FAERS Safety Report 6511448-3 (Version None)
Quarter: 2009Q4

REPORT INFORMATION
  Report Type: 
  Country: None (occurrence: None)
  Receive Date: 20091222
  Receipt Date: 20091214
  Transmission Date: 20100525
  Serious: Yes (Death)
  Sender: FDA-Public Use
  Company Number: ZA-ABBOTT-00P-143-0176969-00

PATIENT
  Age: 66 Year
  Sex: Female
  Weight: 122 kg

DRUGS (8)
  1. REDUCTIL (SIBUTRAMINE) [Suspect]
     Indication: OBESITY
     Route: 048
     Dates: start: 20000729
  2. IBRUPROFEN [Suspect]
     Indication: ARTHRITIS
     Route: 048
  3. GLUCOPHAGE [Suspect]
     Indication: DIABETES MELLITUS
     Route: 048
     Dates: start: 19850101
  4. DIAMICRON [Suspect]
     Indication: DIABETES MELLITUS
     Route: 048
     Dates: start: 19850101
  5. NATRILIX [Suspect]
     Indication: HYPERTENSION
     Route: 048
  6. COVERSYL [Suspect]
     Indication: HYPERTENSION
     Route: 048
     Dates: start: 20000201
  7. TOFRANIL [Suspect]
     Indication: URINARY INCONTINENCE
     Route: 048
  8. UNKNOWN () [Concomitant]

REACTIONS (1)
  - CARDIOVASCULAR DISORDER [None]
